FAERS Safety Report 8942676 (Version 1)
Quarter: 2012Q4

REPORT INFORMATION
  Report Type: Spontaneous
  Country: ES (occurrence: None)
  Receive Date: 20121123
  Receipt Date: 20121123
  Transmission Date: 20130627
  Serious: Yes (Hospitalization)
  Sender: FDA-Public Use
  Company Number: 2012-18327

PATIENT
  Age: 40 Year
  Sex: Male

DRUGS (2)
  1. FLUVOXAMINE MALEATE [Suspect]
     Indication: ANXIETY
  2. FLUVOXAMINE MALEATE [Suspect]
     Indication: ANXIETY

REACTIONS (2)
  - Inappropriate antidiuretic hormone secretion [None]
  - Pancreatitis acute [None]
